FAERS Safety Report 9486596 (Version 1)
Quarter: 2013Q3

REPORT INFORMATION
  Report Type: Spontaneous
  Country: US (occurrence: US)
  Receive Date: 20130829
  Receipt Date: 20130829
  Transmission Date: 20140515
  Serious: Yes (Hospitalization)
  Sender: FDA-Public Use
  Company Number: US-COVIDIEN/TYCO HEALTHCARE/MALLINCKRODT-T201304173

PATIENT
  Age: 43 Year
  Sex: Female

DRUGS (8)
  1. MORPHINE EXTENDED-RELEASE [Suspect]
     Dosage: 100 MG, BID
     Route: 048
  2. HYDROMORPHONE [Suspect]
     Indication: BREAKTHROUGH PAIN
     Dosage: 8 TO 16 MG EVERY 2 HRS PRN
     Route: 048
  3. HYDROMORPHONE [Suspect]
     Dosage: 16 MG, 6 TO 7 TIMES DAILY
     Route: 048
  4. MORPHINE SULFATE [Suspect]
     Indication: PAIN
     Dosage: 60 MG, EVERY 2 HRS, PRN (APPROX 2 DOSES/DAY)
     Route: 060
  5. FENTANYL [Concomitant]
     Route: 062
  6. GABAPENTIN [Concomitant]
     Indication: PAIN
     Dosage: 1200 MG, TID
     Route: 048
  7. IBUPROFEN [Concomitant]
     Indication: PAIN
     Dosage: 800 MG, TID
     Route: 048
  8. OXYCODONE HCL ER [Concomitant]
     Indication: PAIN
     Dosage: 40 MG, TID
     Route: 048

REACTIONS (2)
  - Allodynia [Recovered/Resolved]
  - Hyperaesthesia [Recovered/Resolved]
